FAERS Safety Report 6049566-9 (Version None)
Quarter: 2009Q1

REPORT INFORMATION
  Report Type: 
  Country: None (occurrence: None)
  Receive Date: 20090123
  Receipt Date: 20090113
  Transmission Date: 20090719
  Serious: Yes (Hospitalization)
  Sender: FDA-Public Use
  Company Number: US-PFIZER INC-2009155368

PATIENT
  Sex: Male
  Weight: 89.796 kg

DRUGS (21)
  1. BLINDED *PLACEBO [Suspect]
     Indication: OSTEOARTHRITIS
     Dosage: SEVEN TIMES A DAY
     Route: 048
     Dates: start: 20071010
  2. BLINDED CELECOXIB [Suspect]
     Indication: OSTEOARTHRITIS
     Dosage: SEVEN TIMES A DAY
     Route: 048
     Dates: start: 20071010
  3. IBUPROFEN TABLETS [Suspect]
     Indication: OSTEOARTHRITIS
     Dosage: SEVEN TIMES A DAY
     Route: 048
     Dates: start: 20071010
  4. NAPROXEN [Suspect]
     Indication: OSTEOARTHRITIS
     Dosage: SEVEN TIMES A DAY
     Route: 048
     Dates: start: 20071010
  5. BLINDED *PLACEBO [Suspect]
     Indication: RHEUMATOID ARTHRITIS
  6. BLINDED CELECOXIB [Suspect]
     Indication: RHEUMATOID ARTHRITIS
  7. IBUPROFEN TABLETS [Suspect]
     Indication: RHEUMATOID ARTHRITIS
  8. NAPROXEN [Suspect]
     Indication: RHEUMATOID ARTHRITIS
  9. NEXIUM [Concomitant]
     Dosage: 40 MG, 1X/DAY
     Route: 048
     Dates: start: 20071010
  10. GLYBURIDE [Concomitant]
     Dosage: 10 MG, 2X/DAY
     Dates: start: 20060906
  11. NEURONTIN [Concomitant]
     Dosage: 300 MG, BID-TID
     Dates: start: 20060710
  12. ALTACE [Concomitant]
     Dosage: 10 MG, 1X/DAY
     Dates: start: 20031112
  13. LOPID [Concomitant]
     Dosage: 600 MG, 2X/DAY
     Dates: start: 20021009
  14. METFORMIN [Concomitant]
     Dosage: 1000 MG, 2X/DAY
     Dates: start: 20060906
  15. PLAVIX [Concomitant]
     Dosage: 75 MG, 1X/DAY
     Dates: start: 20060101
  16. ZOCOR [Concomitant]
     Dosage: 40 MG, 1X/DAY
     Dates: start: 20041119
  17. METOPROLOL [Concomitant]
     Dosage: 25 MG, 1X/DAY
     Dates: start: 20030101
  18. BENAZEPRIL [Concomitant]
     Dosage: 20 MG, 1X/DAY
     Dates: start: 20030101
  19. CYCLOBENZAPRINE [Concomitant]
     Dosage: 10 MG, AS NEEDED
     Dates: start: 20060101
  20. LORTAB [Concomitant]
     Dosage: 10 MG, 1 EVERY 4-6 HOURS, AS NEEDED
     Dates: start: 20080528
  21. FLEXERIL [Concomitant]
     Dosage: 10 MG, 1 QHS
     Dates: start: 20080528

REACTIONS (1)
  - LUMBAR RADICULOPATHY [None]
